FAERS Safety Report 6704336-0 (Version None)
Quarter: 2010Q2

REPORT INFORMATION
  Report Type: 
  Country: None (occurrence: None)
  Receive Date: 20100430
  Receipt Date: 20100428
  Transmission Date: 20101027
  Serious: Yes (Hospitalization)
  Sender: FDA-Public Use
  Company Number: JP-SANOFI-AVENTIS-2010SA024483

PATIENT
  Age: 66 Year
  Sex: Male

DRUGS (10)
  1. OXALIPLATIN [Suspect]
     Indication: COLORECTAL CANCER
     Route: 041
     Dates: start: 20091221, end: 20091221
  2. OXALIPLATIN [Suspect]
     Route: 041
     Dates: start: 20100412, end: 20100412
  3. CALCIUM LEVOFOLINATE [Suspect]
     Indication: COLORECTAL CANCER
     Route: 041
     Dates: start: 20091221, end: 20091221
  4. CALCIUM LEVOFOLINATE [Suspect]
     Route: 041
     Dates: start: 20100412, end: 20100412
  5. FLUOROURACIL [Suspect]
     Indication: COLORECTAL CANCER
     Route: 040
     Dates: start: 20091221, end: 20091221
  6. FLUOROURACIL [Suspect]
     Route: 041
     Dates: start: 20091221, end: 20091222
  7. FLUOROURACIL [Suspect]
     Route: 040
     Dates: start: 20100412, end: 20100412
  8. FLUOROURACIL [Suspect]
     Route: 041
     Dates: start: 20100412, end: 20100413
  9. AVASTIN [Suspect]
     Indication: COLORECTAL CANCER
     Route: 041
     Dates: start: 20091221, end: 20091221
  10. AVASTIN [Suspect]
     Route: 041
     Dates: start: 20100412, end: 20100412

REACTIONS (1)
  - DUODENAL ULCER PERFORATION [None]
